FAERS Safety Report 9060297 (Version 1)
Quarter: 2013Q1

REPORT INFORMATION
  Report Type: Spontaneous
  Country: US (occurrence: None)
  Receive Date: 20130207
  Receipt Date: 20130207
  Transmission Date: 20140127
  Serious: Yes (Life-Threatening, Hospitalization, Other)
  Sender: FDA-Public Use
  Company Number: None

PATIENT
  Age: 35 Year
  Sex: Male
  Weight: 84.37 kg

DRUGS (1)
  1. ALPRAZOLAM (XANAX) 1MG/3X PER DAY [Suspect]
     Indication: ANXIETY
     Dosage: 0.5 MG 6X/DAY PILL
     Dates: start: 201207, end: 201301

REACTIONS (7)
  - Middle insomnia [None]
  - Tremor [None]
  - Hyperhidrosis [None]
  - Convulsion [None]
  - Gait disturbance [None]
  - Heart rate increased [None]
  - Anxiety [None]
